FAERS Safety Report 14554204 (Version 1)
Quarter: 2018Q1

REPORT INFORMATION
  Report Type: Spontaneous
  Country: US (occurrence: US)
  Receive Date: 20180208
  Receipt Date: 20180208
  Transmission Date: 20180509
  Serious: Yes (Hospitalization)
  Sender: FDA-Public Use
  Company Number: None

PATIENT
  Age: 95 Year
  Sex: Male

DRUGS (2)
  1. NAPROXEN. [Suspect]
     Active Substance: NAPROXEN
     Indication: PAIN
  2. LISINOPRIL. [Suspect]
     Active Substance: LISINOPRIL
     Indication: PAIN
     Route: 048
     Dates: start: 20141104, end: 20150507

REACTIONS (3)
  - Muscle spasms [None]
  - Acute kidney injury [None]
  - Hyperkalaemia [None]

NARRATIVE: CASE EVENT DATE: 20150504
